FAERS Safety Report 10524636 (Version 2)
Quarter: 2014Q4

REPORT INFORMATION
  Report Type: Spontaneous
  Country: US (occurrence: None)
  Receive Date: 20141015
  Receipt Date: 20141023
  Transmission Date: 20150528
  Serious: Yes (Other)
  Sender: FDA-Public Use
  Company Number: US-H14001-14-01036

PATIENT
  Sex: Female

DRUGS (1)
  1. EPHEDRINE SULFATE CAPSULES USP (EPHEDRINE SULFATE) (25 MILLIGRAM, CAPSULES) (EPHEDRINE SULFATE) [Suspect]
     Active Substance: EPHEDRINE SULFATE
     Indication: LUNG DISORDER
     Dosage: 1-2 CAPSULES (AS REQUIRED), UNKNOWN
     Dates: start: 1997, end: 2014

REACTIONS (7)
  - Depressed mood [None]
  - Renal impairment [None]
  - Hip arthroplasty [None]
  - Depression [None]
  - Malaise [None]
  - Impaired driving ability [None]
  - Deafness [None]

NARRATIVE: CASE EVENT DATE: 201401
